FAERS Safety Report 8680189 (Version 3)
Quarter: 2013Q4

REPORT INFORMATION
  Report Type: Spontaneous
  Country: GR (occurrence: GR)
  Receive Date: 20120724
  Receipt Date: 20131107
  Transmission Date: 20140711
  Serious: Yes (Death, Hospitalization, Other)
  Sender: FDA-Public Use
  Company Number: GR-009507513-1207GRC006940

PATIENT
  Age: 35 Year
  Sex: Male

DRUGS (2)
  1. PEGINTRON [Suspect]
     Indication: HEPATITIS C
     Dosage: 150 UNK, UNK
     Dates: start: 20110920, end: 20120703
  2. REBETOL [Suspect]
     Indication: HEPATITIS C
     Dosage: 1200 MG, UNK
     Dates: start: 20110920, end: 20120703

REACTIONS (6)
  - Pulmonary embolism [Fatal]
  - Cardiac disorder [Fatal]
  - Pleural effusion [Fatal]
  - Fatigue [Fatal]
  - Dyspnoea [Fatal]
  - Pyrexia [Fatal]
